FAERS Safety Report 6295148-3 (Version None)
Quarter: 2009Q3

REPORT INFORMATION
  Report Type: 
  Country: None (occurrence: None)
  Receive Date: 20090730
  Receipt Date: 20090711
  Transmission Date: 20100115
  Serious: No
  Sender: FDA-Public Use
  Company Number: 6052972

PATIENT
  Sex: Male

DRUGS (2)
  1. LEVOTHYROXINE SODIUM [Suspect]
     Indication: DRUG USE FOR UNKNOWN INDICATION
     Dosage: 150 MCG (150 MCG,L IN 1 D), ORAL, 50 MG1 IN 1 D ORAL
     Route: 048
     Dates: start: 20060101
  2. LEVOTHYROXINE SODIUM [Suspect]
     Indication: DRUG USE FOR UNKNOWN INDICATION
     Dosage: 150 MCG (150 MCG,L IN 1 D), ORAL, 50 MG1 IN 1 D ORAL
     Route: 048
     Dates: start: 20081201

REACTIONS (13)
  - ALOPECIA [None]
  - COUGH [None]
  - DECREASED ACTIVITY [None]
  - DRUG DISPENSING ERROR [None]
  - DYSPNOEA [None]
  - MALAISE [None]
  - MEDICATION ERROR [None]
  - PNEUMONIA [None]
  - POOR QUALITY SLEEP [None]
  - SINUSITIS [None]
  - SKIN FISSURES [None]
  - URINE FLOW DECREASED [None]
  - WEIGHT INCREASED [None]
